FAERS Safety Report 24764599 (Version 3)
Quarter: 2025Q1

REPORT INFORMATION
  Report Type: Spontaneous
  Country: US (occurrence: US)
  Receive Date: 20241223
  Receipt Date: 20250127
  Transmission Date: 20250409
  Serious: No
  Sender: ABBVIE
  Company Number: US-ABBVIE-6054673

PATIENT
  Age: 81 Year
  Sex: Female

DRUGS (2)
  1. RESTASIS [Suspect]
     Active Substance: CYCLOSPORINE
     Indication: Keratitis
     Route: 047
     Dates: start: 20241216, end: 20250105
  2. RESTASIS [Suspect]
     Active Substance: CYCLOSPORINE
     Indication: Product used for unknown indication
     Route: 047

REACTIONS (7)
  - Multiple use of single-use product [Not Recovered/Not Resolved]
  - Lacrimation increased [Recovered/Resolved]
  - Dry eye [Unknown]
  - Dacryostenosis acquired [Recovered/Resolved]
  - Ocular hyperaemia [Unknown]
  - Eye irritation [Recovered/Resolved]
  - Ocular discomfort [Recovered/Resolved]

NARRATIVE: CASE EVENT DATE: 20240105
